FAERS Safety Report 20710230 (Version 2)
Quarter: 2024Q2

REPORT INFORMATION
  Report Type: Spontaneous
  Country: GB (occurrence: GB)
  Receive Date: 20220414
  Receipt Date: 20240520
  Transmission Date: 20240715
  Serious: Yes (Death)
  Sender: FDA-Public Use
  Company Number: GB-TEVA-2022-GB-2025682

PATIENT
  Age: 68 Year
  Sex: Female

DRUGS (9)
  1. DEXAMETHASONE [Suspect]
     Active Substance: DEXAMETHASONE
     Indication: Immunoblastic lymphoma
     Dosage: DOSAGE TEXT: AS A PART OF HYPER-CVAD AND EDAP REGIMEN
     Route: 065
  2. AZATHIOPRINE [Suspect]
     Active Substance: AZATHIOPRINE
     Indication: Colitis ulcerative
     Dosage: DOSAGE TEXT: AS A PART OF HYPER-CVAD AND EDAP REGIMEN
     Route: 065
  3. ETOPOSIDE [Suspect]
     Active Substance: ETOPOSIDE
     Indication: Immunoblastic lymphoma
     Dosage: DOSAGE TEXT: AS A PART OF EDAP REGIMEN
     Route: 065
  4. CYTARABINE [Suspect]
     Active Substance: CYTARABINE
     Indication: Immunoblastic lymphoma
     Dosage: DOSAGE TEXT: AS A PART OF HYPER-CVAD AND EDAP REGIMEN
     Route: 065
  5. CYCLOPHOSPHAMIDE [Suspect]
     Active Substance: CYCLOPHOSPHAMIDE
     Indication: Immunoblastic lymphoma
     Dosage: DOSAGE TEXT: AS A PART OF HYPER-CVAD REGIMEN
     Route: 065
  6. VINCRISTINE [Suspect]
     Active Substance: VINCRISTINE
     Indication: Immunoblastic lymphoma
     Dosage: DOSAGE TEXT: AS A PART OF HYPER-CVAD REGIMEN
     Route: 065
  7. DOXORUBICIN [Suspect]
     Active Substance: DOXORUBICIN
     Indication: Immunoblastic lymphoma
     Dosage: DOSAGE TEXT: AS A PART OF HYPER-CVAD REGIMEN
     Route: 065
  8. METHOTREXATE [Suspect]
     Active Substance: METHOTREXATE
     Indication: Immunoblastic lymphoma
     Dosage: DOSAGE TEXT: AS A PART OF HYPER-CVAD REGIMEN
     Route: 065
  9. CISPLATIN [Suspect]
     Active Substance: CISPLATIN
     Indication: Immunoblastic lymphoma
     Dosage: DOSAGE TEXT: AS A PART OF EDAP REGIMEN
     Route: 065

REACTIONS (2)
  - Immunoblastic lymphoma [Fatal]
  - Drug ineffective [Fatal]
